FAERS Safety Report 7561237-6 (Version None)
Quarter: 2011Q2

REPORT INFORMATION
  Report Type: 
  Country: None (occurrence: None)
  Receive Date: 20110621
  Receipt Date: 20100607
  Transmission Date: 20111010
  Serious: No
  Sender: FDA-Public Use
  Company Number: US-ASTRAZENECA-2010SE26486

PATIENT
  Age: 86 Year
  Sex: Male
  Weight: 78 kg

DRUGS (13)
  1. BROVANA [Suspect]
     Indication: COUGH
     Dosage: 15 UG/2 ML BID
     Route: 055
     Dates: start: 20100316, end: 20100426
  2. BROVANA [Suspect]
     Dosage: 15 UG/2 ML BID
     Route: 055
     Dates: start: 20100401
  3. BROVANA [Suspect]
     Indication: ASPIRATION
     Dosage: 15 UG/2 ML BID
     Route: 055
     Dates: start: 20100316, end: 20100426
  4. PULMICORT [Suspect]
     Indication: COUGH
     Route: 055
  5. BROVANA [Suspect]
     Dosage: 15 UG/2 ML BID
     Route: 055
     Dates: start: 20100401
  6. ALBUTEROL SULFATE AUTOHALER [Concomitant]
  7. ASPIRIN [Concomitant]
  8. BROVANA [Suspect]
     Indication: WHEEZING
     Dosage: 15 UG/2 ML BID
     Route: 055
     Dates: start: 20100316, end: 20100426
  9. BROVANA [Suspect]
     Dosage: 15 UG/2 ML BID
     Route: 055
     Dates: start: 20100401
  10. BROVANA [Suspect]
     Indication: RALES
     Dosage: 15 UG/2 ML BID
     Route: 055
     Dates: start: 20100316, end: 20100426
  11. BROVANA [Suspect]
     Dosage: 15 UG/2 ML BID
     Route: 055
     Dates: start: 20100401
  12. DIHYDROTACHYSTEROL [Concomitant]
  13. MULTI-VITAMIN [Concomitant]

REACTIONS (6)
  - TONGUE DISORDER [None]
  - GLOSSODYNIA [None]
  - TONGUE DISCOLOURATION [None]
  - COUGH [None]
  - FUNGAL INFECTION [None]
  - SWOLLEN TONGUE [None]
